FAERS Safety Report 7777109-8 (Version None)
Quarter: 2011Q3

REPORT INFORMATION
  Report Type: 
  Country: None (occurrence: None)
  Receive Date: 20110926
  Receipt Date: 20110921
  Transmission Date: 20111222
  Serious: Yes (Other)
  Sender: FDA-Public Use
  Company Number: JP-PFIZER INC-2011224718

PATIENT
  Age: 75 Year
  Sex: Female

DRUGS (2)
  1. DIFLUCAN [Suspect]
     Indication: PROPHYLAXIS
     Dosage: UNK
  2. VESANOID [Suspect]

REACTIONS (2)
  - DRUG INTERACTION [None]
  - HYPERCALCAEMIA [None]
